FAERS Safety Report 17758785 (Version 1)
Quarter: 2020Q2

REPORT INFORMATION
  Report Type: Report from Study
  Country: None (occurrence: CO)
  Receive Date: 20200507
  Receipt Date: 20200507
  Transmission Date: 20200714
  Serious: Yes (Other)
  Sender: FDA-Public Use
  Company Number: CO-ABBVIE-20K-036-3394391-00

PATIENT
  Age: 77 Year
  Sex: Male
  Weight: 63 kg

DRUGS (1)
  1. ZEMPLAR [Suspect]
     Active Substance: PARICALCITOL
     Indication: CHRONIC KIDNEY DISEASE
     Dosage: 1 POST DIALYSIS
     Route: 042
     Dates: start: 20190306, end: 20200106

REACTIONS (1)
  - Cataract [Recovering/Resolving]

NARRATIVE: CASE EVENT DATE: 201911
